FAERS Safety Report 4944072-4 (Version None)
Quarter: 2006Q1

REPORT INFORMATION
  Report Type: 
  Country: None (occurrence: None)
  Receive Date: 20060315
  Receipt Date: 20060303
  Transmission Date: 20060701
  Serious: Yes (Other)
  Sender: FDA-Public Use
  Company Number: GB-BRISTOL-MYERS SQUIBB COMPANY-13303011

PATIENT
  Age: 11 Year
  Sex: Male
  Weight: 64 kg

DRUGS (4)
  1. ABILIFY [Suspect]
     Indication: AGGRESSION
     Route: 048
     Dates: start: 20041201
  2. ABILIFY [Suspect]
     Indication: PSYCHOTIC DISORDER
     Route: 048
     Dates: start: 20041201
  3. CONCERTA [Concomitant]
     Indication: ATTENTION DEFICIT/HYPERACTIVITY DISORDER
     Route: 048
     Dates: start: 20010101
  4. MELATONIN [Concomitant]
     Indication: INSOMNIA
     Route: 048
     Dates: start: 20040301

REACTIONS (2)
  - GRANULOMA [None]
  - SIMPLE PARTIAL SEIZURES [None]
